FAERS Safety Report 22310861 (Version 5)
Quarter: 2024Q1

REPORT INFORMATION
  Report Type: Report from Study
  Country: US (occurrence: US)
  Receive Date: 20230511
  Receipt Date: 20240226
  Transmission Date: 20240410
  Serious: Yes (Hospitalization, Other)
  Sender: FDA-Public Use
  Company Number: US-ARGENX-2022-ARGX-US002155AA

PATIENT

DRUGS (3)
  1. VYVGART [Suspect]
     Active Substance: EFGARTIGIMOD ALFA-FCAB
     Indication: Myasthenia gravis
     Dosage: 10 MG/KG
     Route: 042
     Dates: start: 20221005
  2. VYVGART [Suspect]
     Active Substance: EFGARTIGIMOD ALFA-FCAB
     Dosage: UNK
     Route: 042
     Dates: start: 20230424
  3. PREDNISONE [Concomitant]
     Active Substance: PREDNISONE
     Indication: Product used for unknown indication
     Dosage: 40 MG
     Route: 065

REACTIONS (30)
  - Myasthenia gravis [Unknown]
  - Diarrhoea [Unknown]
  - Abdominal pain [Unknown]
  - Food poisoning [Unknown]
  - Hypokinesia [Unknown]
  - Visual impairment [Unknown]
  - Renal impairment [Recovered/Resolved]
  - Dehydration [Recovered/Resolved]
  - Vomiting [Unknown]
  - Lacrimation increased [Unknown]
  - Abdominal discomfort [Recovered/Resolved]
  - Diarrhoea [Recovered/Resolved]
  - Headache [Unknown]
  - Respiratory tract congestion [Unknown]
  - Upper-airway cough syndrome [Unknown]
  - Fall [Unknown]
  - Gait disturbance [Unknown]
  - Muscular weakness [Unknown]
  - Eye operation [Recovered/Resolved]
  - Insomnia [Recovered/Resolved]
  - Product dose omission issue [Recovered/Resolved]
  - Fatigue [Unknown]
  - Pulmonary hypertension [Unknown]
  - Diplopia [Unknown]
  - Cough [Unknown]
  - Sinusitis [Unknown]
  - Diabetes mellitus [Unknown]
  - Blood glucose decreased [Unknown]
  - Walking aid user [Unknown]
  - Muscular weakness [Unknown]

NARRATIVE: CASE EVENT DATE: 20221201
